FAERS Safety Report 24317589 (Version 1)
Quarter: 2024Q3

REPORT INFORMATION
  Report Type: Spontaneous
  Country: US (occurrence: US)
  Receive Date: 20240913
  Receipt Date: 20240913
  Transmission Date: 20241016
  Serious: No
  Sender: ABBVIE
  Company Number: US-ABBVIE-5916618

PATIENT
  Sex: Female

DRUGS (1)
  1. RINVOQ [Suspect]
     Active Substance: UPADACITINIB
     Indication: Crohn^s disease
     Route: 048
     Dates: start: 20240907

REACTIONS (4)
  - Dyspnoea [Unknown]
  - Panic reaction [Unknown]
  - Tremor [Unknown]
  - Palpitations [Unknown]

NARRATIVE: CASE EVENT DATE: 20240908
